FAERS Safety Report 8389647-8 (Version None)
Quarter: 2012Q2

REPORT INFORMATION
  Report Type: 
  Country: None (occurrence: None)
  Receive Date: 20120528
  Receipt Date: 20120514
  Transmission Date: 20120825
  Serious: Yes (Other)
  Sender: FDA-Public Use
  Company Number: ES-ROCHE-1070105

PATIENT

DRUGS (3)
  1. XELODA [Suspect]
     Indication: COLORECTAL CANCER
     Route: 048
  2. CETUXIMAB [Suspect]
     Indication: COLORECTAL CANCER
     Dosage: 2-HR INFUSION FOLLOWED BY 250 MG/M2.
     Route: 042
  3. CETUXIMAB [Suspect]
     Dosage: WEEKLY DOSE.
     Route: 042

REACTIONS (13)
  - EYE DISORDER [None]
  - CONJUNCTIVITIS [None]
  - MYOCARDIAL INFARCTION [None]
  - DERMATITIS ACNEIFORM [None]
  - MUCOSAL INFLAMMATION [None]
  - PULMONARY EMBOLISM [None]
  - BLEPHARITIS [None]
  - PALMAR-PLANTAR ERYTHRODYSAESTHESIA SYNDROME [None]
  - PARONYCHIA [None]
  - DIARRHOEA [None]
  - NEUTROPENIA [None]
  - KERATITIS [None]
  - DEEP VEIN THROMBOSIS [None]
